FAERS Safety Report 14568749 (Version 1)
Quarter: 2018Q1

REPORT INFORMATION
  Report Type: Report from Study
  Country: US (occurrence: US)
  Receive Date: 20180223
  Receipt Date: 20180223
  Transmission Date: 20180509
  Serious: Yes (Death, Other)
  Sender: FDA-Public Use
  Company Number: US-PFIZER INC-2017439790

PATIENT
  Age: 60 Year
  Sex: Male

DRUGS (1)
  1. SUTENT [Suspect]
     Active Substance: SUNITINIB MALATE
     Indication: GASTROINTESTINAL STROMAL TUMOUR
     Dosage: 37.5 MG, DAILY
     Route: 048
     Dates: start: 20171008, end: 201801

REACTIONS (6)
  - Condition aggravated [Recovering/Resolving]
  - Neoplasm progression [Unknown]
  - Fatigue [Recovered/Resolved]
  - Back pain [Recovering/Resolving]
  - Abdominal pain lower [Unknown]
  - Death [Fatal]

NARRATIVE: CASE EVENT DATE: 2017
